FAERS Safety Report 9495013 (Version 1)
Quarter: 2013Q3

REPORT INFORMATION
  Report Type: Spontaneous
  Country: FR (occurrence: FR)
  Receive Date: 20130903
  Receipt Date: 20130903
  Transmission Date: 20140515
  Serious: Yes (Hospitalization)
  Sender: FDA-Public Use
  Company Number: FR-SANOFI-AVENTIS-2013SA087034

PATIENT
  Age: 73 Year
  Sex: Female

DRUGS (10)
  1. RIFATER [Suspect]
     Indication: GRANULOMA
     Route: 048
     Dates: start: 20130601, end: 20130731
  2. RIFINAH [Suspect]
     Indication: GRANULOMA
     Dosage: STRENGTH; 300 MG/150 MG
     Route: 048
     Dates: start: 20130801, end: 20130814
  3. MYAMBUTOL [Suspect]
     Indication: GRANULOMA
     Dosage: STRENGTH; 400 MG
     Route: 048
     Dates: start: 20130601, end: 20130731
  4. REMINYL /UNK/ [Concomitant]
     Route: 048
  5. MONO-TILDIEM [Concomitant]
     Route: 048
  6. SERETIDE DISKUS [Concomitant]
     Route: 055
  7. CITALOPRAM [Concomitant]
     Route: 048
  8. SINGULAIR [Concomitant]
     Route: 048
  9. PARACETAMOL [Concomitant]
     Route: 048
  10. LAMALINE [Concomitant]
     Route: 048

REACTIONS (4)
  - Metabolic encephalopathy [Recovering/Resolving]
  - Hyperammonaemia [Recovering/Resolving]
  - Depressed level of consciousness [Recovering/Resolving]
  - Hepatocellular injury [Recovering/Resolving]
